FAERS Safety Report 7675404-4 (Version None)
Quarter: 2011Q3

REPORT INFORMATION
  Report Type: 
  Country: None (occurrence: None)
  Receive Date: 20110810
  Receipt Date: 20110808
  Transmission Date: 20111222
  Serious: Yes (Other)
  Sender: FDA-Public Use
  Company Number: US-CEPHALON-US017089

PATIENT
  Sex: Female
  Weight: 50 kg

DRUGS (7)
  1. DEPO-PROVERA [Concomitant]
     Dosage: EVERY 13 WEEKS
     Route: 030
  2. LEXAPRO [Concomitant]
     Indication: CATAPLEXY
     Route: 048
  3. PROVIGIL [Suspect]
     Indication: NARCOLEPSY
     Dosage: 400MG BID WITH AN ADDITIONAL 200MG PRN
     Route: 048
     Dates: start: 20050301
  4. PROVIGIL [Suspect]
     Indication: CATAPLEXY
  5. IMIPRAMINE [Concomitant]
     Indication: CATAPLEXY
     Route: 048
  6. COLACE [Concomitant]
     Indication: BOWEL MOVEMENT IRREGULARITY
     Route: 048
  7. VITAMIN B-12 [Concomitant]
     Route: 030

REACTIONS (4)
  - TACHYPNOEA [None]
  - THIRST [None]
  - DEHYDRATION [None]
  - BLOOD PRESSURE INCREASED [None]
